FAERS Safety Report 20455812 (Version 3)
Quarter: 2023Q2

REPORT INFORMATION
  Report Type: Spontaneous
  Country: US (occurrence: US)
  Receive Date: 20220210
  Receipt Date: 20230531
  Transmission Date: 20230721
  Serious: Yes (Other)
  Sender: FDA-Public Use
  Company Number: US-JNJFOC-20220211418

PATIENT
  Age: 46 Year
  Sex: Female

DRUGS (10)
  1. ELMIRON [Suspect]
     Active Substance: PENTOSAN POLYSULFATE SODIUM
     Indication: Cystitis interstitial
     Route: 048
     Dates: start: 199608, end: 2014
  2. ELMIRON [Suspect]
     Active Substance: PENTOSAN POLYSULFATE SODIUM
     Route: 048
     Dates: start: 20141013, end: 20200822
  3. SIMVASTATIN [Concomitant]
     Active Substance: SIMVASTATIN
     Indication: Blood cholesterol increased
     Route: 065
     Dates: start: 20150728, end: 20190313
  4. LISINOPRIL [Concomitant]
     Active Substance: LISINOPRIL
     Indication: Blood pressure measurement
     Route: 065
     Dates: start: 20150728, end: 20200612
  5. FLUTICASONE [Concomitant]
     Active Substance: FLUTICASONE
     Indication: Asthma
     Route: 065
     Dates: start: 20130605, end: 20191014
  6. NITROFURANTOIN [Concomitant]
     Active Substance: NITROFURANTOIN
     Indication: Urinary tract infection
     Route: 065
     Dates: start: 20140128, end: 20190114
  7. GABAPENTIN [Concomitant]
     Active Substance: GABAPENTIN
     Indication: Pain
     Route: 065
     Dates: start: 20120426, end: 20200604
  8. AMOXICILLIN [Concomitant]
     Active Substance: AMOXICILLIN
     Indication: Infection
     Route: 065
     Dates: start: 20130605, end: 20200422
  9. PHENAZOPYRIDINE [Concomitant]
     Active Substance: PHENAZOPYRIDINE
     Indication: Urinary tract infection
     Route: 065
     Dates: start: 20141209, end: 20180522
  10. AMITRIPTYLINE [Concomitant]
     Active Substance: AMITRIPTYLINE
     Indication: Cystitis interstitial
     Route: 065
     Dates: start: 20131010, end: 20160518

REACTIONS (4)
  - Dry age-related macular degeneration [Not Recovered/Not Resolved]
  - Maculopathy [Unknown]
  - Off label use [Unknown]
  - Product use issue [Unknown]

NARRATIVE: CASE EVENT DATE: 19960801
